FAERS Safety Report 7548054-8 (Version None)
Quarter: 2011Q2

REPORT INFORMATION
  Report Type: 
  Country: None (occurrence: None)
  Receive Date: 20110524
  Receipt Date: 20110224
  Transmission Date: 20111010
  Serious: No
  Sender: FDA-Public Use
  Company Number: 028238

PATIENT
  Sex: Male
  Weight: 81.7 kg

DRUGS (5)
  1. TOCOPHEROL CONCENTRATE CAP [Concomitant]
  2. CIMZIA [Suspect]
     Indication: CROHN'S DISEASE
     Dosage: SUBCUTANEOUS
     Route: 058
     Dates: start: 20110117
  3. ASCORBIC ACID [Concomitant]
  4. PENTASA [Concomitant]
  5. PREDNISONE [Concomitant]

REACTIONS (1)
  - GROIN PAIN [None]
